FAERS Safety Report 7943904-5 (Version None)
Quarter: 2011Q4

REPORT INFORMATION
  Report Type: 
  Country: None (occurrence: None)
  Receive Date: 20111128
  Receipt Date: 20111118
  Transmission Date: 20120403
  Serious: Yes (Hospitalization)
  Sender: FDA-Public Use
  Company Number: US-ASTRAZENECA-2011SE70626

PATIENT
  Age: 68 Year
  Sex: Male
  Weight: 88.5 kg

DRUGS (1)
  1. METOPROLOL SUCCINATE [Suspect]
     Indication: BLOOD PRESSURE ABNORMAL
     Route: 048
     Dates: start: 20111111, end: 20111111

REACTIONS (4)
  - RASH GENERALISED [None]
  - DRUG HYPERSENSITIVITY [None]
  - LABORATORY TEST ABNORMAL [None]
  - CHEST PAIN [None]
